FAERS Safety Report 24075924 (Version 1)
Quarter: 2024Q3

REPORT INFORMATION
  Report Type: Report from Study
  Country: US (occurrence: US)
  Receive Date: 20240710
  Receipt Date: 20240710
  Transmission Date: 20241017
  Serious: No
  Sender: BIOGEN
  Company Number: US-BIOGEN-2024BI01272024

PATIENT
  Age: 38 Year
  Sex: Female

DRUGS (1)
  1. ZURZUVAE [Suspect]
     Active Substance: ZURANOLONE
     Indication: Perinatal depression
     Route: 050
     Dates: start: 20240620, end: 20240701

REACTIONS (2)
  - Dizziness [Unknown]
  - Tremor [Unknown]

NARRATIVE: CASE EVENT DATE: 20240601
